FAERS Safety Report 7637576-7 (Version None)
Quarter: 2011Q3

REPORT INFORMATION
  Report Type: 
  Country: None (occurrence: None)
  Receive Date: 20110726
  Receipt Date: 20110718
  Transmission Date: 20111222
  Serious: Yes (Hospitalization)
  Sender: FDA-Public Use
  Company Number: GR-GILEAD-2011-0042180

PATIENT
  Sex: Male
  Weight: 72 kg

DRUGS (9)
  1. AMLODIPINE BESYLATE [Concomitant]
     Indication: ANGINA PECTORIS
     Dates: start: 20101001
  2. LISINOPRIL [Concomitant]
     Indication: ANGINA PECTORIS
     Dates: start: 20100501
  3. RANEXA [Suspect]
     Indication: ANGINA PECTORIS
     Route: 048
     Dates: start: 20101223
  4. RANEXA [Suspect]
     Dates: start: 20110208
  5. ATORVASTATIN [Concomitant]
     Indication: BLOOD CHOLESTEROL
     Dates: start: 20100501
  6. CLOPIDOGREL [Concomitant]
     Indication: ANGINA PECTORIS
     Dates: start: 20100501
  7. PANTOPRAZOLE [Concomitant]
     Indication: PROPHYLAXIS AGAINST GASTROINTESTINAL ULCER
     Dates: start: 20100501
  8. METOPROLOL TARTRATE [Concomitant]
     Indication: ANGINA PECTORIS
     Dates: start: 20100501
  9. ISOSORBIDE MONONITRATE [Concomitant]
     Indication: ANGINA PECTORIS
     Dates: start: 20100501

REACTIONS (1)
  - ANGINA UNSTABLE [None]
